FAERS Safety Report 5596786-3 (Version None)
Quarter: 2008Q1

REPORT INFORMATION
  Report Type: 
  Country: None (occurrence: None)
  Receive Date: 20080118
  Receipt Date: 20080109
  Transmission Date: 20080703
  Serious: Yes (Life-Threatening)
  Sender: FDA-Public Use
  Company Number: FR-PFIZER INC-2008003244

PATIENT
  Sex: Male

DRUGS (8)
  1. TAHOR [Suspect]
     Route: 048
  2. ALDACTAZIDE [Suspect]
     Route: 048
  3. COZAAR [Suspect]
     Route: 048
  4. TILCOTIL [Suspect]
     Indication: BACK PAIN
     Route: 048
     Dates: start: 20070717, end: 20070717
  5. GLUCOPHAGE [Suspect]
     Route: 048
  6. AMARYL [Suspect]
     Route: 048
  7. CORGARD [Suspect]
     Route: 048
  8. ADANCOR [Suspect]
     Route: 048

REACTIONS (3)
  - HYPERKALAEMIA [None]
  - LACTIC ACIDOSIS [None]
  - RENAL FAILURE [None]
